FAERS Safety Report 15853298 (Version 1)
Quarter: 2019Q1

REPORT INFORMATION
  Report Type: Spontaneous
  Country: US (occurrence: US)
  Receive Date: 20190120
  Receipt Date: 20190120
  Transmission Date: 20190417
  Serious: Yes (Life-Threatening, Hospitalization)
  Sender: FDA-Public Use
  Company Number: None

PATIENT
  Age: 45 Year
  Sex: Female
  Weight: 53.1 kg

DRUGS (3)
  1. PHOSPHATE [Concomitant]
     Active Substance: UNSPECIFIED INGREDIENT
  2. INJECTAFER [Suspect]
     Active Substance: FERRIC CARBOXYMALTOSE
     Indication: ANAEMIA
     Dosage: ?          QUANTITY:2 INJECTION(S);OTHER FREQUENCY:2 IN TWO WEEKS;?
     Route: 042
  3. CALCITROIL [Concomitant]

REACTIONS (18)
  - Malaise [None]
  - Vitamin D deficiency [None]
  - Headache [None]
  - Renal disorder [None]
  - Parathyroid disorder [None]
  - Fatigue [None]
  - Multi-organ disorder [None]
  - Panic attack [None]
  - Fibroblast growth factor 23 increased [None]
  - Palpitations [None]
  - Dizziness [None]
  - Peripheral coldness [None]
  - Drug hypersensitivity [None]
  - Hepatic enzyme increased [None]
  - Aortic valve incompetence [None]
  - Presyncope [None]
  - Hypophosphataemia [None]
  - Serum ferritin increased [None]

NARRATIVE: CASE EVENT DATE: 20180922
